FAERS Safety Report 9600633 (Version 2)
Quarter: 2013Q4

REPORT INFORMATION
  Report Type: Spontaneous
  Country: US (occurrence: US)
  Receive Date: 20131004
  Receipt Date: 20131004
  Transmission Date: 20140711
  Serious: No
  Sender: FDA-Public Use
  Company Number: US-AMGEN-USASP2013028089

PATIENT
  Age: 69 Year
  Sex: Female
  Weight: 77.1 kg

DRUGS (4)
  1. ENBREL [Suspect]
     Indication: PSORIASIS
     Dosage: UNK
     Route: 058
     Dates: start: 20120919, end: 20130416
  2. LISINOPRIL [Concomitant]
     Dosage: UNK
  3. FLONASE [Concomitant]
     Dosage: UNK
  4. SINGULAIR [Concomitant]
     Dosage: UNK

REACTIONS (1)
  - Herpes zoster [Not Recovered/Not Resolved]
